FAERS Safety Report 8144471-6 (Version None)
Quarter: 2012Q1

REPORT INFORMATION
  Report Type: 
  Country: None (occurrence: None)
  Receive Date: 20120214
  Receipt Date: 20120206
  Transmission Date: 20120608
  Serious: Yes (Hospitalization)
  Sender: FDA-Public Use
  Company Number: 2012SP006876

PATIENT
  Age: 33 Year
  Sex: Male

DRUGS (2)
  1. PEGINTERFERON ALFA-2B [Suspect]
     Indication: MALIGNANT MELANOMA STAGE III
     Dosage: 888 MCG; 444 MCG
     Dates: start: 20110620, end: 20110801
  2. PEGINTERFERON ALFA-2B [Suspect]
     Indication: MALIGNANT MELANOMA STAGE III
     Dosage: 888 MCG; 444 MCG
     Dates: start: 20110801

REACTIONS (5)
  - PSYCHOTIC DISORDER [None]
  - DEPRESSION [None]
  - ANXIETY [None]
  - HERPES ZOSTER [None]
  - DRUG HYPERSENSITIVITY [None]
